FAERS Safety Report 9130021 (Version 1)
Quarter: 2013Q1

REPORT INFORMATION
  Report Type: Spontaneous
  Country: US (occurrence: US)
  Receive Date: 20130228
  Receipt Date: 20130228
  Transmission Date: 20140127
  Serious: Yes (Hospitalization, Other)
  Sender: FDA-Public Use
  Company Number: CHPA2013US003456

PATIENT
  Age: 79 Year
  Sex: Female

DRUGS (7)
  1. BENEFIBER SUGAR FREE [Suspect]
     Indication: BOWEL MOVEMENT IRREGULARITY
     Dosage: 3 TSP, QD
     Route: 048
     Dates: start: 2009, end: 201302
  2. BENEFIBER STICK PACKS [Suspect]
     Indication: BOWEL MOVEMENT IRREGULARITY
     Dosage: UNK, UNK
  3. GAS-X EXTSTR CHEWABLE TABS CHERRY CREME [Suspect]
     Indication: FLATULENCE
  4. CEPACOL [Concomitant]
  5. HYDROCHLOROTHIAZIDE [Concomitant]
  6. NYSTATIN [Concomitant]
     Indication: RASH
     Dosage: 60 G, UNK
  7. METOPROLOL [Concomitant]
     Indication: HYPERTENSION

REACTIONS (10)
  - Fall [Recovering/Resolving]
  - Abdominal pain upper [Not Recovered/Not Resolved]
  - Infection [Recovered/Resolved]
  - Influenza [Recovered/Resolved]
  - Pelvic pain [Recovered/Resolved]
  - Blood urine present [Recovered/Resolved]
  - Clostridium difficile colitis [Recovered/Resolved]
  - Bedridden [Recovering/Resolving]
  - Constipation [Recovered/Resolved]
  - Diarrhoea [Recovered/Resolved]
